FAERS Safety Report 7422242-3 (Version None)
Quarter: 2011Q2

REPORT INFORMATION
  Report Type: 
  Country: None (occurrence: None)
  Receive Date: 20110419
  Receipt Date: 20110407
  Transmission Date: 20111010
  Serious: Yes (Other)
  Sender: FDA-Public Use
  Company Number: US-CEPHALON-US022266

PATIENT
  Sex: Male
  Weight: 2 kg

DRUGS (1)
  1. PROVIGIL [Suspect]
     Route: 064
     Dates: start: 19950823, end: 19950910

REACTIONS (2)
  - PREMATURE BABY [None]
  - ABDOMINAL PAIN [None]
